FAERS Safety Report 20406762 (Version 5)
Quarter: 2022Q2

REPORT INFORMATION
  Report Type: Report from Study
  Country: IT (occurrence: None)
  Receive Date: 20220131
  Receipt Date: 20220613
  Transmission Date: 20220721
  Serious: Yes (Hospitalization)
  Sender: FDA-Public Use
  Company Number: IT-ROCHE-3006813

PATIENT
  Age: 57 Year
  Sex: Female
  Weight: 117 kg

DRUGS (19)
  1. GLOFITAMAB [Suspect]
     Active Substance: GLOFITAMAB
     Indication: Diffuse large B-cell lymphoma
     Dosage: MOST RECENT DOSE OF GLOFITAMAB WAS ADMIN ON 21/DEC/2021 AT 01:00 PM PRIOR TO AE/SAE.?DOSE LAST STUDY
     Route: 042
     Dates: start: 20200513
  2. GLOFITAMAB [Suspect]
     Active Substance: GLOFITAMAB
     Indication: Non-Hodgkin^s lymphoma
  3. RITUXIMAB [Suspect]
     Active Substance: RITUXIMAB
     Indication: Diffuse large B-cell lymphoma
     Dosage: MOST RECENT DOSE OF RITUXIMAB WAS ADMIN ON 17/AUG/2020 AT 11:49 AM WHICH ENDED ON 02:40 PM PRIOR TO
     Route: 042
     Dates: start: 20200506
  4. RITUXIMAB [Suspect]
     Active Substance: RITUXIMAB
     Indication: Non-Hodgkin^s lymphoma
  5. OBINUTUZUMAB [Suspect]
     Active Substance: OBINUTUZUMAB
     Indication: Diffuse large B-cell lymphoma
     Dosage: MOST RECENT DOSE OF OBINUTUZUMAB WAS ADMIN ON 16/APR/2020 AT 09:29 AM WHICH ENDED ON 02:14 PM PRIOR
     Route: 042
     Dates: start: 20200416
  6. OBINUTUZUMAB [Suspect]
     Active Substance: OBINUTUZUMAB
     Indication: Non-Hodgkin^s lymphoma
  7. CYCLOPHOSPHAMIDE [Suspect]
     Active Substance: CYCLOPHOSPHAMIDE
     Indication: Diffuse large B-cell lymphoma
     Dosage: TOTAL VOLUME 100 ML?MOST RECENT DOSE OF CYCLOPHOSPHAMIDE WAS ADMIN ON 17/AUG/2018 AT 03:28 PM TO 03:
     Route: 042
     Dates: start: 20200416
  8. CYCLOPHOSPHAMIDE [Suspect]
     Active Substance: CYCLOPHOSPHAMIDE
     Indication: Non-Hodgkin^s lymphoma
  9. DOXORUBICIN [Suspect]
     Active Substance: DOXORUBICIN
     Indication: Diffuse large B-cell lymphoma
     Dosage: MOST RECENT DOSE OF DOXORUBICIN WAS ADMIN ON 17/AUG/2020 AT 03:20 TO 03:25 PM PRIOR TO AE/SAE.
     Route: 042
     Dates: start: 20200416
  10. DOXORUBICIN [Suspect]
     Active Substance: DOXORUBICIN
     Indication: Non-Hodgkin^s lymphoma
  11. PREDNISONE [Suspect]
     Active Substance: PREDNISONE
     Indication: Diffuse large B-cell lymphoma
     Dosage: MOST RECENT DOSE OF PREDNISONE WAS ADMIN ON 21/AUG/2020 PRIOR TO AE/SAE.
     Route: 048
     Dates: start: 20200417
  12. PREDNISONE [Suspect]
     Active Substance: PREDNISONE
     Indication: Non-Hodgkin^s lymphoma
  13. VINCRISTINE [Suspect]
     Active Substance: VINCRISTINE
     Indication: Diffuse large B-cell lymphoma
     Dosage: TOTAL VOLUME 50 ML?MOST RECENT DOSE OF VINCRISTINE WAS ADMIN ON 17/AUG/2020 AT 03:10 PM TO 03:15 PM
     Route: 042
     Dates: start: 20200416
  14. VINCRISTINE [Suspect]
     Active Substance: VINCRISTINE
     Indication: Non-Hodgkin^s lymphoma
  15. METHYLPREDNISOLONE [Suspect]
     Active Substance: METHYLPREDNISOLONE
     Indication: Diffuse large B-cell lymphoma
     Dosage: MOST RECENT DOSE OF METHYLPREDNISOLONE WAS ADMIN ON 17/AUG/2020 (80 MG) PRIOR TO AE/SAE AT 8: 00 AM
     Route: 048
     Dates: start: 20200416
  16. METHYLPREDNISOLONE [Suspect]
     Active Substance: METHYLPREDNISOLONE
     Indication: Non-Hodgkin^s lymphoma
     Route: 042
     Dates: start: 20211221, end: 20211221
  17. ACYCLOVIR [Concomitant]
     Active Substance: ACYCLOVIR
     Dates: start: 20200331
  18. BACTRIM [Concomitant]
     Active Substance: SULFAMETHOXAZOLE\TRIMETHOPRIM
     Dates: start: 20200331
  19. OMEPRAZOLE [Concomitant]
     Active Substance: OMEPRAZOLE
     Dates: start: 20210111

REACTIONS (1)
  - COVID-19 pneumonia [Not Recovered/Not Resolved]

NARRATIVE: CASE EVENT DATE: 20220119
